FAERS Safety Report 8840219 (Version 4)
Quarter: 2016Q1

REPORT INFORMATION
  Report Type: Report from Study
  Country: JP (occurrence: JP)
  Receive Date: 20121015
  Receipt Date: 20160120
  Transmission Date: 20160526
  Serious: Yes (Hospitalization, Other)
  Sender: FDA-Public Use
  Company Number: JP-VERTEX PHARMACEUTICAL INC.-AE-2012-010893

PATIENT
  Age: 66 Year
  Sex: Male
  Weight: 60 kg

DRUGS (13)
  1. TELAPREVIR [Suspect]
     Active Substance: TELAPREVIR
     Indication: CHRONIC HEPATITIS C
     Dosage: 2250 MG, QD
     Route: 048
     Dates: start: 20120604, end: 20120617
  2. LIDOMEX [Concomitant]
     Active Substance: PREDNISOLONE VALERATE ACETATE
     Dosage: UNK/ ON THE FACE AND NECK
     Route: 061
     Dates: start: 20120713, end: 20120713
  3. JUVELA [Concomitant]
     Active Substance: .ALPHA.-TOCOPHEROL\RETINOL
     Dosage: UNK/APPLIED TO SORE AREAS OF THE TOES AND SOLES
     Route: 061
     Dates: start: 20120713, end: 20120713
  4. TELAPREVIR [Suspect]
     Active Substance: TELAPREVIR
     Dosage: 1500 MG, QD
     Route: 048
     Dates: start: 20120619, end: 20120707
  5. PEGINTRON [Suspect]
     Active Substance: PEGINTERFERON ALFA-2B
     Indication: CHRONIC HEPATITIS C
     Dosage: 1.5 ?G/KG, QW
     Route: 058
     Dates: start: 20120604, end: 20120702
  6. REBETOL [Suspect]
     Active Substance: RIBAVIRIN
     Indication: CHRONIC HEPATITIS C
     Dosage: 600 MG, QD
     Route: 048
     Dates: start: 20120604, end: 20120707
  7. TELAPREVIR [Suspect]
     Active Substance: TELAPREVIR
     Dosage: 2000 MG, QD
     Route: 048
     Dates: start: 20120618, end: 20120618
  8. ZYLORIC [Suspect]
     Active Substance: ALLOPURINOL
     Indication: PRODUCT USED FOR UNKNOWN INDICATION
     Dosage: 200 MG, QD
     Route: 048
     Dates: start: 20120604, end: 20120605
  9. ZYLORIC [Suspect]
     Active Substance: ALLOPURINOL
     Dosage: 300 MG, QD
     Route: 048
     Dates: start: 20120606, end: 20120707
  10. TSUMARA RIKKUNSHITO EXTRACT GRANULES FOR ETHICAL USE [Concomitant]
     Indication: PROPHYLAXIS
     Dosage: 3 DF, QD
     Route: 048
     Dates: start: 20120604, end: 20120707
  11. TAKEPRON [Concomitant]
     Active Substance: LANSOPRAZOLE
     Indication: PROPHYLAXIS
     Dosage: 15 MG, QD
     Route: 048
     Dates: start: 20120604, end: 20120707
  12. TALION [Concomitant]
     Active Substance: BEPOTASTINE
     Dosage: 20 MG, QD
     Route: 048
     Dates: start: 20120713, end: 20120713
  13. VOLTAREN [Concomitant]
     Active Substance: DICLOFENAC SODIUM
     Indication: PROPHYLAXIS
     Dosage: 25 MG, QD PRN
     Route: 054
     Dates: start: 20120618, end: 20120702

REACTIONS (7)
  - Renal impairment [Recovering/Resolving]
  - Drug eruption [Not Recovered/Not Resolved]
  - Drug eruption [Recovered/Resolved]
  - Stevens-Johnson syndrome [Unknown]
  - Pneumonia [Unknown]
  - Drug eruption [Recovering/Resolving]
  - Pancreatitis [Recovering/Resolving]

NARRATIVE: CASE EVENT DATE: 20120613
